FAERS Safety Report 6839967-0 (Version None)
Quarter: 2010Q3

REPORT INFORMATION
  Report Type: 
  Country: None (occurrence: None)
  Receive Date: 20100709
  Receipt Date: 20100630
  Transmission Date: 20110219
  Serious: Yes (Other)
  Sender: FDA-Public Use
  Company Number: DSU-2010-02050

PATIENT
  Age: 56 Year
  Sex: Female
  Weight: 53.5244 kg

DRUGS (5)
  1. WELCHOL [Suspect]
     Indication: HYPERLIPIDAEMIA
     Dosage: 3750 MG (1875 MG, BID), PER ORAL
     Route: 048
     Dates: start: 20090101
  2. VITAMINS (ERGOCALCIFEROL, ASCORBIC ACID, THIAMINE HYDROCHLORIDE, RETIO [Concomitant]
  3. OMEGA 3 (EICOSAPENTAENOIC ACID, DOCOSAHEXANOIC ACID) (EISCOSAPENTAENOI [Concomitant]
  4. NIACIN (NICOTINIC ACID) (NICOTINIC ACID) [Concomitant]
  5. COQ19 (UBIDECARENONE) (UBIFECARDENONE) [Concomitant]

REACTIONS (3)
  - ALCOHOL USE [None]
  - DEEP VEIN THROMBOSIS [None]
  - MYOPATHY [None]
